FAERS Safety Report 5527344-4 (Version None)
Quarter: 2007Q4

REPORT INFORMATION
  Report Type: 
  Country: None (occurrence: None)
  Receive Date: 20071128
  Receipt Date: 20071121
  Transmission Date: 20080405
  Serious: Yes (Hospitalization)
  Sender: FDA-Public Use
  Company Number: B0496893A

PATIENT
  Age: 68 Year
  Sex: Female

DRUGS (2)
  1. ZINADOL [Suspect]
     Dosage: 250MG TWICE PER DAY
     Route: 048
     Dates: start: 20070924, end: 20071010
  2. ZYVOX [Suspect]
     Dosage: 600MG TWICE PER DAY
     Route: 048
     Dates: start: 20070924, end: 20071010

REACTIONS (1)
  - VASCULITIS [None]
